FAERS Safety Report 4270861-8 (Version None)
Quarter: 2004Q1

REPORT INFORMATION
  Report Type: 
  Country: None (occurrence: None)
  Receive Date: 20040113
  Receipt Date: 20040105
  Transmission Date: 20041129
  Serious: Yes (Hospitalization)
  Sender: FDA-Public Use
  Company Number: 2004193270FR

PATIENT
  Age: 64 Year
  Sex: Female

DRUGS (2)
  1. XANAX [Suspect]
     Dosage: 1 DF, ORAL
     Route: 048
     Dates: start: 20000615
  2. IDOXIFENE() [Suspect]
     Indication: OSTEOPOROSIS
     Dosage: ORAL
     Route: 048
     Dates: start: 19990615, end: 20000615

REACTIONS (1)
  - AMYOTROPHIC LATERAL SCLEROSIS [None]
